FAERS Safety Report 21741998 (Version 1)
Quarter: 2022Q4

REPORT INFORMATION
  Report Type: Report from Study
  Country: US (occurrence: US)
  Receive Date: 20221216
  Receipt Date: 20221216
  Transmission Date: 20230112
  Serious: No
  Sender: FDA-Public Use
  Company Number: US-ABBVIE-4201552

PATIENT
  Sex: Female

DRUGS (5)
  1. HUMIRA [Suspect]
     Active Substance: ADALIMUMAB
     Indication: Rheumatoid arthritis
     Route: 058
  2. HUMIRA [Suspect]
     Active Substance: ADALIMUMAB
     Indication: Crohn^s disease
  3. HUMIRA [Suspect]
     Active Substance: ADALIMUMAB
     Indication: Colitis ulcerative
  4. Johnson + Johnson [Concomitant]
     Indication: COVID-19 immunisation
     Dosage: 1ST DOSE ?FREQUENCY 1 IN ONCE
     Route: 030
     Dates: start: 20210115, end: 20210115
  5. Johnson + Johnson [Concomitant]
     Indication: COVID-19 immunisation
     Dosage: 2ND DOSE ?FREQUENCY 1 IN ONCE
     Route: 030
     Dates: start: 20210127, end: 20210127

REACTIONS (2)
  - Pain in extremity [Unknown]
  - Back pain [Recovered/Resolved]
